FAERS Safety Report 6744509-4 (Version None)
Quarter: 2010Q2

REPORT INFORMATION
  Report Type: 
  Country: None (occurrence: None)
  Receive Date: 20100527
  Receipt Date: 20100520
  Transmission Date: 20101027
  Serious: Yes (Hospitalization)
  Sender: FDA-Public Use
  Company Number: US-GILEAD-2010-0029056

PATIENT
  Sex: Female

DRUGS (2)
  1. TRUVADA [Suspect]
     Indication: HIV INFECTION
     Dates: start: 20090501
  2. KALETRA [Concomitant]
     Indication: HIV INFECTION
     Dates: start: 20090501

REACTIONS (1)
  - STAPHYLOCOCCAL INFECTION [None]
